FAERS Safety Report 18557385 (Version 2)
Quarter: 2021Q1

REPORT INFORMATION
  Report Type: Report from Study
  Country: None (occurrence: US)
  Receive Date: 20201129
  Receipt Date: 20210104
  Transmission Date: 20210419
  Serious: Yes (Other)
  Sender: FDA-Public Use
  Company Number: US-ABBVIE-20K-163-3614477-00

PATIENT
  Sex: Female

DRUGS (2)
  1. HUMIRA [Suspect]
     Active Substance: ADALIMUMAB
     Route: 058
     Dates: start: 2020
  2. HUMIRA [Suspect]
     Active Substance: ADALIMUMAB
     Indication: PSORIASIS
     Dosage: DAY 1
     Route: 058
     Dates: start: 20201014, end: 20201014

REACTIONS (11)
  - Skin irritation [Not Recovered/Not Resolved]
  - Frustration tolerance decreased [Unknown]
  - Insomnia [Unknown]
  - Nausea [Recovered/Resolved]
  - Pain [Not Recovered/Not Resolved]
  - Injection site bruising [Unknown]
  - Psoriasis [Unknown]
  - Tendon rupture [Unknown]
  - Post procedural cellulitis [Unknown]
  - Skin discolouration [Unknown]
  - Headache [Recovered/Resolved]

NARRATIVE: CASE EVENT DATE: 2020
